FAERS Safety Report 15702956 (Version 1)
Quarter: 2018Q4

REPORT INFORMATION
  Report Type: Spontaneous
  Country: IT (occurrence: IT)
  Receive Date: 20181210
  Receipt Date: 20181210
  Transmission Date: 20190205
  Serious: Yes (Other)
  Sender: FDA-Public Use
  Company Number: IT-TAKEDA-2018TUS034834

PATIENT
  Age: 78 Year
  Sex: Male

DRUGS (3)
  1. DELTACORTENE [Concomitant]
     Active Substance: PREDNISONE
  2. ENTYVIO [Suspect]
     Active Substance: VEDOLIZUMAB
     Indication: COLITIS ULCERATIVE
     Dosage: 300 MG, UNK
     Route: 042
     Dates: start: 20161011, end: 20180103
  3. ENALAPRIL/IDROCLOROTIAZIDE [Concomitant]
     Dosage: UNK

REACTIONS (1)
  - Lung adenocarcinoma [Not Recovered/Not Resolved]

NARRATIVE: CASE EVENT DATE: 20180118
